FAERS Safety Report 17216432 (Version 1)
Quarter: 2019Q4

REPORT INFORMATION
  Report Type: Spontaneous
  Country: FR (occurrence: FR)
  Receive Date: 20191230
  Receipt Date: 20191230
  Transmission Date: 20200122
  Serious: Yes (Hospitalization, Other)
  Sender: FDA-Public Use
  Company Number: FR-BRISTOL-MYERS SQUIBB COMPANY-BMS-2019-121576

PATIENT
  Age: 64 Year
  Sex: Female
  Weight: 89 kg

DRUGS (2)
  1. SPRYCEL [Suspect]
     Active Substance: DASATINIB
     Indication: CHRONIC MYELOID LEUKAEMIA
     Route: 048
     Dates: start: 2013, end: 20191120
  2. LERCANIDIPINE [Concomitant]
     Active Substance: LERCANIDIPINE
     Indication: HYPERTENSION
     Route: 048

REACTIONS (4)
  - Diverticulitis [Unknown]
  - Mucocutaneous rash [Unknown]
  - Rash [Recovering/Resolving]
  - Neutrophilic dermatosis [Recovering/Resolving]

NARRATIVE: CASE EVENT DATE: 2014
